FAERS Safety Report 9192690 (Version 1)
Quarter: 2013Q1

REPORT INFORMATION
  Report Type: Spontaneous
  Country: US (occurrence: US)
  Receive Date: 20130327
  Receipt Date: 20130327
  Transmission Date: 20140127
  Serious: No
  Sender: FDA-Public Use
  Company Number: US-009507513-1303USA012471

PATIENT
  Sex: Male

DRUGS (3)
  1. PEGINTRON [Suspect]
     Indication: HEPATITIS C
     Dosage: UNK REDIPEN
     Dates: start: 20120831, end: 20130307
  2. REBETOL [Suspect]
     Indication: HEPATITIS C
     Dosage: UNK
     Dates: start: 20120831, end: 20130314
  3. VICTRELIS [Suspect]
     Indication: HEPATITIS C
     Dosage: UNK
     Dates: start: 20120928, end: 20130314

REACTIONS (11)
  - Anaemia [Unknown]
  - Insomnia [Unknown]
  - Pollakiuria [Recovering/Resolving]
  - Dysgeusia [Unknown]
  - Hypoaesthesia [Unknown]
  - Haemoglobin decreased [Unknown]
  - White blood cell count decreased [Unknown]
  - Leukopenia [Unknown]
  - Platelet count decreased [Unknown]
  - Myalgia [Unknown]
  - Thrombocytopenia [Unknown]
